FAERS Safety Report 13142368 (Version 1)
Quarter: 2017Q1

REPORT INFORMATION
  Report Type: Spontaneous
  Country: FR (occurrence: FR)
  Receive Date: 20170124
  Receipt Date: 20170124
  Transmission Date: 20170428
  Serious: Yes (Hospitalization)
  Sender: FDA-Public Use
  Company Number: FR-SA-2017SA011707

PATIENT
  Age: 61 Year
  Sex: Male
  Weight: 70 kg

DRUGS (12)
  1. LASILIX [Concomitant]
     Active Substance: FUROSEMIDE
     Route: 048
     Dates: start: 20151126
  2. CELLCEPT [Concomitant]
     Active Substance: MYCOPHENOLATE MOFETIL\MYCOPHENOLATE MOFETIL HYDROCHLORIDE
     Dosage: STRENGTH: 500 MG
     Route: 048
     Dates: start: 20150716
  3. ARANESP [Concomitant]
     Active Substance: DARBEPOETIN ALFA
     Route: 058
  4. SOLUPRED [Concomitant]
     Active Substance: PREDNISOLONE
     Dosage: STRENGTH: 5 MG
     Route: 048
     Dates: start: 20141127
  5. APROVEL [Suspect]
     Active Substance: IRBESARTAN
     Indication: ESSENTIAL HYPERTENSION
     Route: 048
     Dates: start: 20160526
  6. NEORAL [Concomitant]
     Active Substance: CYCLOSPORINE
     Dosage: STRENGTH: 10 MG
     Route: 048
     Dates: start: 20150825
  7. NEORAL [Concomitant]
     Active Substance: CYCLOSPORINE
     Dosage: STRENGTH: 50 MG
     Route: 048
     Dates: start: 20150721
  8. KARDEGIC [Concomitant]
     Active Substance: ASPIRIN LYSINE
     Dosage: 1 SACHET
  9. AMLOR [Concomitant]
     Active Substance: AMLODIPINE BESYLATE
     Route: 048
     Dates: start: 20151126
  10. HYPERIUM [Concomitant]
     Active Substance: RILMENIDINE PHOSPHATE
     Route: 048
     Dates: start: 20160107
  11. ADENURIC [Concomitant]
     Active Substance: FEBUXOSTAT
     Route: 048
     Dates: start: 20160323
  12. TENORMIN [Concomitant]
     Active Substance: ATENOLOL
     Dosage: FILM COATED DIVISIBLE TABLET
     Route: 048
     Dates: start: 20141127

REACTIONS (1)
  - Anaemia [Recovering/Resolving]

NARRATIVE: CASE EVENT DATE: 20160716
